FAERS Safety Report 23373869 (Version 1)
Quarter: 2024Q1

REPORT INFORMATION
  Report Type: Spontaneous
  Country: US (occurrence: US)
  Receive Date: 20240105
  Receipt Date: 20240105
  Transmission Date: 20240410
  Serious: Yes (Other)
  Sender: FDA-Public Use
  Company Number: US-COOPERSURGICAL, INC.-US-2023CPS002033

PATIENT
  Age: 41 Year
  Sex: Female
  Weight: 47.166 kg

DRUGS (2)
  1. PARAGARD T 380A [Suspect]
     Active Substance: COPPER
     Indication: Contraception
     Dosage: UNK
     Route: 015
     Dates: start: 20150424
  2. VITAMINS NOS [Concomitant]
     Active Substance: VITAMINS
     Indication: Product used for unknown indication
     Route: 065

REACTIONS (4)
  - Device breakage [Unknown]
  - Foreign body in reproductive tract [Unknown]
  - Complication of device removal [Unknown]
  - Embedded device [Unknown]

NARRATIVE: CASE EVENT DATE: 20230131
